FAERS Safety Report 9117579 (Version 2)
Quarter: 2015Q2

REPORT INFORMATION
  Report Type: Spontaneous
  Country: US (occurrence: US)
  Receive Date: 20130225
  Receipt Date: 20150420
  Transmission Date: 20150821
  Serious: No
  Sender: FDA-Public Use
  Company Number: US-BIOGENIDEC-2013BI015703

PATIENT
  Age: 65 Year
  Sex: Female

DRUGS (1)
  1. TYSABRI [Suspect]
     Active Substance: NATALIZUMAB
     Indication: MULTIPLE SCLEROSIS
     Route: 042
     Dates: start: 20120517, end: 20121004

REACTIONS (3)
  - Malaise [Unknown]
  - Multiple sclerosis relapse [Unknown]
  - Adverse event [Unknown]

NARRATIVE: CASE EVENT DATE: 201302
